FAERS Safety Report 10247888 (Version 1)
Quarter: 2014Q2

REPORT INFORMATION
  Report Type: Spontaneous
  Country: AR (occurrence: AR)
  Receive Date: 20140619
  Receipt Date: 20140619
  Transmission Date: 20141212
  Serious: Yes (Other)
  Sender: FDA-Public Use
  Company Number: AR-PFIZER INC-2014167009

PATIENT
  Age: 68 Year
  Sex: Female

DRUGS (1)
  1. SOMAVERT [Suspect]
     Indication: ACROMEGALY
     Dosage: 10 MG, 3X/WEEK
     Dates: start: 20130502

REACTIONS (5)
  - Bone neoplasm [Not Recovered/Not Resolved]
  - Hypoaesthesia [Not Recovered/Not Resolved]
  - Pain in extremity [Not Recovered/Not Resolved]
  - Pain [Not Recovered/Not Resolved]
  - Gait disturbance [Not Recovered/Not Resolved]
